FAERS Safety Report 18600255 (Version 2)
Quarter: 2020Q4

REPORT INFORMATION
  Report Type: Report from Study
  Country: GB (occurrence: GB)
  Receive Date: 20201210
  Receipt Date: 20201224
  Transmission Date: 20210114
  Serious: Yes (Other)
  Sender: FDA-Public Use
  Company Number: GB-SAMSUNG BIOEPIS-SB-2020-36721

PATIENT
  Sex: Female

DRUGS (2)
  1. BENEPALI [Suspect]
     Active Substance: ETANERCEPT
     Indication: RHEUMATOID ARTHRITIS
     Route: 058
  2. BENEPALI [Suspect]
     Active Substance: ETANERCEPT
     Route: 058

REACTIONS (2)
  - Full blood count decreased [Unknown]
  - Immunosuppression [Unknown]
